FAERS Safety Report 9185296 (Version 2)
Quarter: 2013Q3

REPORT INFORMATION
  Report Type: Spontaneous
  Country: US (occurrence: US)
  Receive Date: 20130325
  Receipt Date: 20130723
  Transmission Date: 20140515
  Serious: Yes (Hospitalization)
  Sender: FDA-Public Use
  Company Number: US-TEVA-393162USA

PATIENT
  Age: 61 Year
  Sex: Female
  Weight: 81.72 kg

DRUGS (18)
  1. COPAXONE [Suspect]
     Indication: MULTIPLE SCLEROSIS
     Dosage: 20 MILLIGRAM DAILY;
     Route: 058
     Dates: start: 20130304, end: 20130314
  2. TRAZODONE HYDROCHLORIDE [Suspect]
     Dosage: 1 TABLET AT BEDTIME
     Route: 048
     Dates: start: 20130118
  3. ASPIRIN [Concomitant]
     Dosage: 325 MILLIGRAM DAILY;
     Route: 048
  4. CELEXA [Concomitant]
     Dosage: 10 MICROGRAM DAILY;
     Route: 048
  5. LUNESTA [Concomitant]
     Dosage: 3 MILLIGRAM DAILY; QHS
     Route: 048
  6. FISH OIL [Concomitant]
     Route: 048
  7. ISOSORBIDE [Concomitant]
     Dosage: 60 MILLIGRAM DAILY;
     Route: 048
  8. LOPRESSOR [Concomitant]
     Dosage: 50 MILLIGRAM DAILY;
     Route: 048
  9. MULTIVITAMIN [Concomitant]
     Route: 048
  10. PREDNISONE [Concomitant]
     Dosage: 5 MICROGRAM DAILY;
     Route: 048
  11. KLOR-CON [Concomitant]
     Dosage: 10 MILLIEQUIVALENTS DAILY;
     Dates: start: 20120802
  12. LASIX [Concomitant]
     Dosage: 20 MILLIGRAM DAILY;
     Route: 048
     Dates: start: 20130118
  13. LORTAB [Concomitant]
     Dosage: 7.5-500 MG
     Dates: start: 20130118
  14. NITROSTAT [Concomitant]
     Route: 060
  15. OMEPRAZOLE [Concomitant]
     Dosage: 20 MILLIGRAM DAILY;
  16. PRAMIPEXOTE DIHYDROCHLORIDE [Concomitant]
     Dosage: 1-2 TABLETS AT BEDTIME
  17. RANEXA [Concomitant]
     Dosage: 250 MILLIGRAM DAILY;
     Route: 048
  18. REBIF 44 [Concomitant]
     Dosage: 18.8571 MICROGRAM DAILY;
     Route: 058
     Dates: start: 20130118

REACTIONS (1)
  - Pain [Not Recovered/Not Resolved]
